FAERS Safety Report 7997026-8 (Version None)
Quarter: 2011Q4

REPORT INFORMATION
  Report Type: 
  Country: None (occurrence: None)
  Receive Date: 20111221
  Receipt Date: 20110914
  Transmission Date: 20120403
  Serious: No
  Sender: FDA-Public Use
  Company Number: US-MYLANLABS-2011S1019282

PATIENT
  Sex: Female

DRUGS (1)
  1. LETROZOLE [Suspect]
     Indication: BREAST CANCER
     Route: 048
     Dates: start: 20110606, end: 20110808

REACTIONS (9)
  - FATIGUE [None]
  - NAUSEA [None]
  - TOOTHACHE [None]
  - HOT FLUSH [None]
  - HYPERHIDROSIS [None]
  - HEADACHE [None]
  - ABDOMINAL DISCOMFORT [None]
  - ARTHRALGIA [None]
  - INSOMNIA [None]
